FAERS Safety Report 25246992 (Version 1)
Quarter: 2025Q2

REPORT INFORMATION
  Report Type: Report from Study
  Country: US (occurrence: US)
  Receive Date: 20250428
  Receipt Date: 20250428
  Transmission Date: 20250717
  Serious: Yes (Other)
  Sender: UCB
  Company Number: US-UCBSA-2025023747

PATIENT

DRUGS (2)
  1. BIMEKIZUMAB [Suspect]
     Active Substance: BIMEKIZUMAB
     Indication: Psoriatic arthropathy
  2. BIMEKIZUMAB [Suspect]
     Active Substance: BIMEKIZUMAB
     Indication: Psoriasis

REACTIONS (26)
  - Pyelonephritis [Unknown]
  - Fungal infection [Unknown]
  - Candida infection [Unknown]
  - Intertrigo [Unknown]
  - Vulvovaginal candidiasis [Unknown]
  - Upper respiratory tract infection [Unknown]
  - COVID-19 [Unknown]
  - Infection [Unknown]
  - Cellulitis [Unknown]
  - Folliculitis [Unknown]
  - Eczema [Unknown]
  - Psoriasis [Unknown]
  - Hypertransaminasaemia [Unknown]
  - Depression [Unknown]
  - Tooth infection [Unknown]
  - Urinary tract infection [Unknown]
  - Soft tissue infection [Unknown]
  - Injection site reaction [Unknown]
  - Injection site pain [Unknown]
  - Injection site swelling [Unknown]
  - Injection site erythema [Unknown]
  - Headache [Unknown]
  - Fatigue [Unknown]
  - Adverse event [Unknown]
  - Drug ineffective [Unknown]
  - Insurance issue [Unknown]
